FAERS Safety Report 4515376-4 (Version None)
Quarter: 2004Q4

REPORT INFORMATION
  Report Type: 
  Country: None (occurrence: None)
  Receive Date: 20041126
  Receipt Date: 20041112
  Transmission Date: 20050328
  Serious: Yes (Death, Hospitalization)
  Sender: FDA-Public Use
  Company Number: 2004UW23403

PATIENT
  Age: 70 Year
  Sex: Male
  Weight: 73.0291 kg

DRUGS (2)
  1. IRESSA [Suspect]
     Indication: NON-SMALL CELL LUNG CANCER
     Dosage: 250 MG DAILY PO
     Route: 048
     Dates: start: 20041026, end: 20041102
  2. CELEBREX [Suspect]
     Indication: NON-SMALL CELL LUNG CANCER
     Dosage: 400 MG BID PO
     Route: 048
     Dates: start: 20041026, end: 20041109

REACTIONS (8)
  - DEHYDRATION [None]
  - DIARRHOEA [None]
  - FATIGUE [None]
  - MARKEDLY REDUCED DIETARY INTAKE [None]
  - PULMONARY EMBOLISM [None]
  - RENAL FAILURE [None]
  - SUDDEN DEATH [None]
  - WEIGHT DECREASED [None]
